FAERS Safety Report 6955817-6 (Version None)
Quarter: 2010Q3

REPORT INFORMATION
  Report Type: 
  Country: None (occurrence: None)
  Receive Date: 20100830
  Receipt Date: 20100609
  Transmission Date: 20110219
  Serious: Yes (Other)
  Sender: FDA-Public Use
  Company Number: US-AMGEN-QUU413152

PATIENT
  Sex: Male
  Weight: 83.1 kg

DRUGS (7)
  1. NPLATE [Suspect]
     Indication: IDIOPATHIC THROMBOCYTOPENIC PURPURA
     Route: 058
     Dates: start: 20100126, end: 20100316
  2. CORTICOSTEROIDS [Concomitant]
     Dates: start: 20090817
  3. RITUXIMAB [Concomitant]
     Route: 042
     Dates: start: 20071014
  4. ARANESP [Concomitant]
     Dates: start: 20090820
  5. PROCRIT [Concomitant]
     Dates: start: 20100126, end: 20100126
  6. PREDNISONE [Concomitant]
     Dates: start: 20090818
  7. FINASTERIDE [Concomitant]
     Dates: start: 20080716

REACTIONS (1)
  - DRUG INEFFECTIVE [None]
